FAERS Safety Report 4882110-8 (Version None)
Quarter: 2006Q1

REPORT INFORMATION
  Report Type: 
  Country: None (occurrence: None)
  Receive Date: 20060117
  Receipt Date: 20050304
  Transmission Date: 20060701
  Serious: Yes (Hospitalization, Other)
  Sender: FDA-Public Use
  Company Number: US-MERCK-0503USA00989

PATIENT
  Age: 50 Year
  Sex: Female
  Weight: 92 kg

DRUGS (6)
  1. VIOXX [Suspect]
     Indication: OSTEOARTHRITIS
     Route: 048
     Dates: start: 20000320, end: 20040929
  2. ZYRTEC [Concomitant]
     Route: 065
  3. NORVASC [Concomitant]
     Route: 065
  4. DIOVAN [Concomitant]
     Route: 065
  5. LO/OVRAL [Concomitant]
     Route: 065
  6. MIACALCIN [Concomitant]
     Route: 065

REACTIONS (8)
  - ADVERSE EVENT [None]
  - ARTHROPATHY [None]
  - CARDIAC DISORDER [None]
  - CEREBROVASCULAR ACCIDENT [None]
  - CONVULSION [None]
  - ISCHAEMIC STROKE [None]
  - TRANSIENT ISCHAEMIC ATTACK [None]
  - VERTIGO [None]
